FAERS Safety Report 18474762 (Version 1)
Quarter: 2020Q4

REPORT INFORMATION
  Report Type: Spontaneous
  Country: US (occurrence: US)
  Receive Date: 20201106
  Receipt Date: 20201106
  Transmission Date: 20210114
  Serious: Yes (Other)
  Sender: FDA-Public Use
  Company Number: US-SYNEX-T202005262

PATIENT
  Age: 9 Day
  Sex: Male

DRUGS (1)
  1. INOMAX [Suspect]
     Active Substance: NITRIC OXIDE
     Indication: NEWBORN PERSISTENT PULMONARY HYPERTENSION
     Dosage: 20 PPM (INHALATION)
     Route: 055
     Dates: start: 20201019, end: 20201028

REACTIONS (2)
  - Device delivery system issue [Recovered/Resolved]
  - Neonatal hypoxia [Recovered/Resolved]

NARRATIVE: CASE EVENT DATE: 20201028
